FAERS Safety Report 7831257-2 (Version None)
Quarter: 2011Q4

REPORT INFORMATION
  Report Type: 
  Country: None (occurrence: None)
  Receive Date: 20111021
  Receipt Date: 20111013
  Transmission Date: 20120403
  Serious: Yes (Hospitalization)
  Sender: FDA-Public Use
  Company Number: FR-ROCHE-1006011

PATIENT
  Sex: Female

DRUGS (6)
  1. PREDNISONE [Concomitant]
  2. XOLAIR [Suspect]
     Indication: ASTHMA
     Dosage: DAILY
     Route: 058
     Dates: start: 20110822
  3. ATORVASTATIN [Concomitant]
  4. METFORMIN HCL [Concomitant]
     Dosage: DOSE: 2000
  5. GLYBURIDE [Concomitant]
  6. LOSARTAN POTASSIUM AND HYDROCHLOROTHIAZIDE [Concomitant]
     Dosage: 100/25 MG

REACTIONS (2)
  - RESPIRATORY DISTRESS [None]
  - ASTHMATIC CRISIS [None]
